FAERS Safety Report 18197824 (Version 1)
Quarter: 2020Q3

REPORT INFORMATION
  Report Type: Report from Study
  Country: US (occurrence: US)
  Receive Date: 20200826
  Receipt Date: 20200826
  Transmission Date: 20201103
  Serious: No
  Sender: FDA-Public Use
  Company Number: NVSC2020US233721

PATIENT
  Sex: Female

DRUGS (3)
  1. PIQRAY [Suspect]
     Active Substance: ALPELISIB
     Indication: PRODUCT USED FOR UNKNOWN INDICATION
     Dosage: UNK
     Route: 048
  2. PIQRAY [Suspect]
     Active Substance: ALPELISIB
     Dosage: REDUCED DOSE
     Route: 048
  3. PIQRAY [Suspect]
     Active Substance: ALPELISIB
     Dosage: BACK TO NORMAL DOSE
     Route: 048

REACTIONS (2)
  - Rash [Unknown]
  - Ageusia [Unknown]
